FAERS Safety Report 8447806-X (Version None)
Quarter: 2012Q2

REPORT INFORMATION
  Report Type: 
  Country: None (occurrence: None)
  Receive Date: 20120619
  Receipt Date: 20120608
  Transmission Date: 20120825
  Serious: Yes (Hospitalization)
  Sender: FDA-Public Use
  Company Number: US-BAYER-2012-011421

PATIENT
  Age: 20 Year
  Sex: Female

DRUGS (5)
  1. MOTRIN [Concomitant]
     Indication: HEADACHE
     Route: 048
  2. YAZ [Suspect]
     Dosage: UNK
     Dates: start: 20070101
  3. CEFTIN [Concomitant]
  4. EXCEDRIN (MIGRAINE) [Concomitant]
     Indication: HEADACHE
     Route: 048
  5. ALBUTEROL [Concomitant]

REACTIONS (7)
  - PHYSICAL DISABILITY [None]
  - GENERAL PHYSICAL HEALTH DETERIORATION [None]
  - EMOTIONAL DISTRESS [None]
  - ANXIETY [None]
  - PULMONARY EMBOLISM [None]
  - PAIN [None]
  - INJURY [None]
